FAERS Safety Report 6985610-X (Version None)
Quarter: 2010Q3

REPORT INFORMATION
  Report Type: 
  Country: None (occurrence: None)
  Receive Date: 20100915
  Receipt Date: 20100908
  Transmission Date: 20110219
  Serious: Yes (Hospitalization)
  Sender: FDA-Public Use
  Company Number: JP-BRISTOL-MYERS SQUIBB COMPANY-15236151

PATIENT
  Age: 49 Year
  Sex: Male
  Weight: 62 kg

DRUGS (6)
  1. BARACLUDE [Suspect]
     Indication: HEPATITIS B
     Dosage: ALSO ON 10JUL2010
     Route: 048
     Dates: start: 20100710, end: 20100802
  2. PRIMPERAN TAB [Concomitant]
     Indication: NAUSEA
     Dosage: TABLET
     Route: 048
     Dates: start: 20100712, end: 20100714
  3. LOXONIN [Concomitant]
     Indication: NAUSEA
     Dosage: TABLET
     Route: 048
     Dates: start: 20100721, end: 20100802
  4. SELBEX [Concomitant]
     Indication: NAUSEA
     Dosage: CAPSULE
     Route: 048
  5. MAGMITT [Concomitant]
     Indication: CONSTIPATION
     Dosage: TABLET
     Route: 048
     Dates: start: 20100710, end: 20100803
  6. STRONGER NEO-MINOPHAGEN C [Concomitant]
     Route: 041

REACTIONS (1)
  - THROMBOTIC THROMBOCYTOPENIC PURPURA [None]
